FAERS Safety Report 5169378-8 (Version None)
Quarter: 2006Q4

REPORT INFORMATION
  Report Type: 
  Country: None (occurrence: None)
  Receive Date: 20061201
  Receipt Date: 20061117
  Transmission Date: 20070319
  Serious: Yes (Other)
  Sender: FDA-Public Use
  Company Number: US-2006-033874

PATIENT
  Age: 62 Year
  Sex: Female

DRUGS (1)
  1. BETASERON [Suspect]
     Indication: MULTIPLE SCLEROSIS
     Dosage: 2 MIU, EVERY 2D, SUBCUTANEOUS
     Route: 058
     Dates: start: 20061022, end: 20061109

REACTIONS (4)
  - BLOOD PRESSURE DECREASED [None]
  - DEPRESSION [None]
  - PHARYNGOLARYNGEAL PAIN [None]
  - SUICIDAL IDEATION [None]
